FAERS Safety Report 7574064-0 (Version None)
Quarter: 2011Q2

REPORT INFORMATION
  Report Type: 
  Country: None (occurrence: None)
  Receive Date: 20110621
  Receipt Date: 20110613
  Transmission Date: 20111010
  Serious: Yes (Hospitalization, Other)
  Sender: FDA-Public Use
  Company Number: 2010SP009502

PATIENT
  Age: 25 Year
  Sex: Female
  Weight: 117.028 kg

DRUGS (9)
  1. IMITREX [Concomitant]
  2. LEVAQUIN [Suspect]
     Indication: PNEUMONIA
     Dosage: 750 MG;QD;
     Dates: start: 20080304
  3. PROZAC [Concomitant]
  4. COUMADIN [Suspect]
     Indication: THROMBOSIS
     Dates: start: 20080301, end: 20100101
  5. COUMADIN [Suspect]
     Indication: THROMBOSIS PROPHYLAXIS
     Dates: start: 20080301, end: 20100101
  6. TREXIMET [Concomitant]
  7. NUVARING [Suspect]
     Indication: MENSTRUAL CYCLE MANAGEMENT
     Dosage: ;QM;
     Dates: start: 20050801, end: 20080301
  8. NUVARING [Suspect]
     Indication: DYSMENORRHOEA
     Dosage: ;QM;
     Dates: start: 20050801, end: 20080301
  9. NUVARING [Suspect]
     Indication: CONTRACEPTION
     Dosage: ;QM;
     Dates: start: 20050801, end: 20080301

REACTIONS (31)
  - MULTIPLE INJURIES [None]
  - ATELECTASIS [None]
  - ASTHENIA [None]
  - PNEUMONIA [None]
  - BINGE EATING [None]
  - PROTHROMBIN TIME PROLONGED [None]
  - GALLBLADDER DISORDER [None]
  - SINUS TACHYCARDIA [None]
  - POST PROCEDURAL PULMONARY EMBOLISM [None]
  - PULMONARY INFARCTION [None]
  - LUNG INFILTRATION [None]
  - MENISCUS LESION [None]
  - PLEURAL EFFUSION [None]
  - LIVER FUNCTION TEST ABNORMAL [None]
  - CERVICAL DYSPLASIA [None]
  - OOPHORECTOMY [None]
  - THROMBOSIS [None]
  - INTERNATIONAL NORMALISED RATIO DECREASED [None]
  - DRUG HYPERSENSITIVITY [None]
  - NASAL CONGESTION [None]
  - UPPER-AIRWAY COUGH SYNDROME [None]
  - PYREXIA [None]
  - INTERNATIONAL NORMALISED RATIO INCREASED [None]
  - HYPOXIA [None]
  - OEDEMA [None]
  - MIGRAINE [None]
  - TRANSIENT ISCHAEMIC ATTACK [None]
  - WEIGHT FLUCTUATION [None]
  - ACTIVATED PARTIAL THROMBOPLASTIN TIME PROLONGED [None]
  - GASTRIC BYPASS [None]
  - DEEP VEIN THROMBOSIS POSTOPERATIVE [None]
